FAERS Safety Report 10093489 (Version 1)
Quarter: 2014Q2

REPORT INFORMATION
  Report Type: Spontaneous
  Country: US (occurrence: US)
  Receive Date: 20140421
  Receipt Date: 20140421
  Transmission Date: 20141212
  Serious: Yes (Other)
  Sender: FDA-Public Use
  Company Number: US-SA-2014SA000131

PATIENT
  Age: 66 Year
  Sex: Male
  Weight: 77 kg

DRUGS (3)
  1. ALLEGRA [Suspect]
     Indication: RHINITIS ALLERGIC
     Route: 065
     Dates: start: 2013
  2. SIMVASTATIN [Concomitant]
  3. ASPIRIN [Concomitant]

REACTIONS (2)
  - Dyspnoea [Recovered/Resolved]
  - Vomiting [Unknown]
